FAERS Safety Report 20657683 (Version 1)
Quarter: 2022Q1

REPORT INFORMATION
  Report Type: Report from Study
  Country: FR (occurrence: FR)
  Receive Date: 20220331
  Receipt Date: 20220331
  Transmission Date: 20220423
  Serious: Yes (Hospitalization)
  Sender: FDA-Public Use
  Company Number: FR-SERVIER-S21010062

PATIENT

DRUGS (8)
  1. PEGASPARGASE [Suspect]
     Active Substance: PEGASPARGASE
     Indication: Acute lymphocytic leukaemia
     Dosage: 1312.5 IU, D12, D26
     Route: 042
     Dates: start: 20210630, end: 20210714
  2. VINCRISTINE SULFATE [Concomitant]
     Active Substance: VINCRISTINE SULFATE
     Indication: Acute lymphocytic leukaemia
     Dosage: 1.6 MG, D8, D15, D22, D29
     Route: 042
     Dates: start: 20210626, end: 20210717
  3. DAUNORUBICIN [Concomitant]
     Active Substance: DAUNORUBICIN
     Indication: Acute lymphocytic leukaemia
     Dosage: 32 MG, D8, D15, D22, D29
     Route: 042
     Dates: start: 20210626, end: 20210717
  4. TN UNSPECIFIED [Concomitant]
     Indication: Acute lymphocytic leukaemia
     Dosage: 15 MG,D9, D13, D18, D24
     Route: 037
     Dates: start: 20210627, end: 20210712
  5. TN UNSPECIFIED [Concomitant]
     Indication: Acute lymphocytic leukaemia
     Dosage: 15.2 MG, D9, D13, D18, D24
     Route: 037
     Dates: start: 20210627, end: 20210712
  6. TN UNSPECIFIED [Concomitant]
     Indication: Acute lymphocytic leukaemia
     Dosage: 30 MG, D9, D13, D18,D24
     Route: 037
     Dates: start: 20210627, end: 20210712
  7. TN UNSPECIFIED [Concomitant]
     Indication: Acute lymphocytic leukaemia
     Dosage: 65 MG, D1 TO D7, D8 TO D28
     Route: 048
     Dates: start: 20210626, end: 20210716
  8. TN UNSPECIFIED [Concomitant]
     Indication: Acute lymphocytic leukaemia
     Route: 065

REACTIONS (3)
  - Pyelonephritis [Recovered/Resolved]
  - Urinary tract infection bacterial [Recovered/Resolved]
  - Rectal abscess [Recovered/Resolved]

NARRATIVE: CASE EVENT DATE: 20210717
